FAERS Safety Report 8112241-0 (Version None)
Quarter: 2012Q1

REPORT INFORMATION
  Report Type: 
  Country: None (occurrence: None)
  Receive Date: 20120202
  Receipt Date: 20120202
  Transmission Date: 20120608
  Serious: Yes (Hospitalization)
  Sender: FDA-Public Use
  Company Number: None

PATIENT
  Age: 78 Year
  Sex: Male

DRUGS (2)
  1. FENTANYL-25 [Suspect]
     Indication: SEDATION
     Dosage: 25MCG 042
     Dates: start: 20110309
  2. MIDAZOLAM [Suspect]
     Indication: SEDATION
     Dosage: 4MG 042
     Dates: start: 20110309

REACTIONS (1)
  - OBSTRUCTIVE AIRWAYS DISORDER [None]
